FAERS Safety Report 8033258-0 (Version None)
Quarter: 2012Q1

REPORT INFORMATION
  Report Type: 
  Country: None (occurrence: None)
  Receive Date: 20120110
  Receipt Date: 20120105
  Transmission Date: 20120608
  Serious: Yes (Hospitalization, Other)
  Sender: FDA-Public Use
  Company Number: JP-PFIZER INC-2011291585

PATIENT
  Age: 83 Year
  Sex: Male
  Weight: 62.7 kg

DRUGS (17)
  1. ASPIRIN [Concomitant]
     Indication: PROPHYLAXIS
     Dosage: 100 MG, 1X/DAY
     Route: 048
  2. COCARL [Concomitant]
     Indication: ANALGESIC THERAPY
     Dosage: 400 MG, 3X/DAY
     Route: 048
     Dates: start: 20111101, end: 20111117
  3. ADALAT [Concomitant]
     Indication: HYPERTENSION
     Dosage: 20 MG, 3X/DAY
     Route: 048
  4. HARNAL D [Concomitant]
     Indication: PROSTATOMEGALY
     Dosage: 0.2 MG, 1X/DAY
     Route: 048
  5. ALDACTONE [Concomitant]
     Dosage: 25 MG, 1X/DAY
     Route: 048
  6. SITAGLIPTIN PHOSPHATE [Concomitant]
     Indication: DIABETES MELLITUS
     Dosage: 50 MG, 1X/DAY
     Route: 048
  7. METFORMIN HCL [Concomitant]
     Indication: DIABETES MELLITUS
     Dosage: 250 MG, 3X/DAY
     Route: 048
  8. LYRICA [Suspect]
     Dosage: 150 MG, 2X/DAY
     Route: 048
     Dates: start: 20111118, end: 20111127
  9. ACICLOVIR [Concomitant]
     Indication: HERPES ZOSTER
     Dosage: 250 MG, 2X/DAY
     Route: 041
     Dates: start: 20111101, end: 20111107
  10. LIPITOR [Concomitant]
     Indication: LIPIDS ABNORMAL
     Dosage: 10 MG, 1X/DAY
     Route: 048
  11. DOXAZOSIN MESYLATE [Concomitant]
     Indication: HYPERTENSION
     Dosage: 2 MG, 1X/DAY
     Route: 048
  12. ALLOPURINOL [Concomitant]
     Indication: HYPERURICAEMIA
     Dosage: 100 MG, 1X/DAY
     Route: 048
  13. LYRICA [Suspect]
     Indication: POST HERPETIC NEURALGIA
     Dosage: 75 MG, 2X/DAY
     Route: 048
     Dates: start: 20111101, end: 20111117
  14. COCARL [Concomitant]
     Dosage: 800 MG, 3X/DAY
     Route: 048
     Dates: start: 20111118, end: 20111127
  15. CARVEDILOL [Concomitant]
     Indication: HYPERTENSION
     Dosage: 10 MG, 1X/DAY
     Route: 048
  16. TRICHLORMETHIAZIDE [Concomitant]
     Indication: HYPERTENSION
     Dosage: 2 MG, 1X/DAY
     Route: 048
  17. CASODEX [Concomitant]
     Indication: PROSTATE CANCER
     Dosage: 80 MG, 1X/DAY
     Route: 048

REACTIONS (5)
  - ALTERED STATE OF CONSCIOUSNESS [None]
  - VOMITING [None]
  - DRUG INEFFECTIVE [None]
  - NAUSEA [None]
  - DYSURIA [None]
